FAERS Safety Report 5047434-2 (Version None)
Quarter: 2006Q3

REPORT INFORMATION
  Report Type: 
  Country: None (occurrence: None)
  Receive Date: 20060703
  Receipt Date: 20060622
  Transmission Date: 20061208
  Serious: Yes (Other)
  Sender: FDA-Public Use
  Company Number: 2006069987

PATIENT
  Age: 75 Year
  Sex: Male

DRUGS (3)
  1. XALATAN [Suspect]
     Indication: DRUG USE FOR UNKNOWN INDICATION
  2. CORTICOSTEROIDS (CORTICOSTEROIDS) [Concomitant]
  3. DORZOLAMIDE (DORZOLAMIDE) [Concomitant]

REACTIONS (4)
  - CATARACT OPERATION [None]
  - MACULAR OEDEMA [None]
  - UVEITIS [None]
  - VISUAL DISTURBANCE [None]
